FAERS Safety Report 13154163 (Version 1)
Quarter: 2017Q1

REPORT INFORMATION
  Report Type: Report from Study
  Country: US (occurrence: US)
  Receive Date: 20170126
  Receipt Date: 20170126
  Transmission Date: 20170428
  Serious: No
  Sender: FDA-Public Use
  Company Number: US-AMGEN-USASL2016109687

PATIENT
  Age: 76 Year
  Sex: Male

DRUGS (2)
  1. DECADRON [Concomitant]
     Active Substance: DEXAMETHASONE
     Dosage: UNK
     Dates: start: 20160818
  2. KYPROLIS [Suspect]
     Active Substance: CARFILZOMIB
     Indication: PLASMA CELL MYELOMA
     Dosage: UNK, 28 DAY CYCLE
     Route: 065
     Dates: start: 20160818

REACTIONS (9)
  - Chills [Not Recovered/Not Resolved]
  - Body temperature increased [Unknown]
  - Dizziness [Unknown]
  - Blood pressure increased [Unknown]
  - Neuralgia [Unknown]
  - Fatigue [Unknown]
  - Influenza like illness [Unknown]
  - Pyrexia [Not Recovered/Not Resolved]
  - Hypotension [Unknown]

NARRATIVE: CASE EVENT DATE: 2016
